FAERS Safety Report 20840996 (Version 1)
Quarter: 2022Q2

REPORT INFORMATION
  Report Type: Spontaneous
  Country: US (occurrence: US)
  Receive Date: 20220517
  Receipt Date: 20220517
  Transmission Date: 20220721
  Serious: No
  Sender: FDA-Public Use
  Company Number: US-PFIZER INC-202101839197

PATIENT
  Age: 6 Year
  Sex: Female

DRUGS (1)
  1. ZARONTIN [Suspect]
     Active Substance: ETHOSUXIMIDE
     Indication: Epilepsy
     Dosage: 1250 MG, DAILY (2 CAPSULES BY MOUTH EVERY MORNING AND 3 CAPSULES BY MOUTH AT NIGHT)
     Route: 048

REACTIONS (1)
  - Abdominal pain upper [Unknown]
